FAERS Safety Report 23549357 (Version 1)
Quarter: 2024Q1

REPORT INFORMATION
  Report Type: Spontaneous
  Country: DE (occurrence: DE)
  Receive Date: 20240221
  Receipt Date: 20240221
  Transmission Date: 20240410
  Serious: Yes (Death, Life-Threatening, Hospitalization, Other)
  Sender: FDA-Public Use
  Company Number: DE-AMK-272541

PATIENT
  Age: 50 Year
  Sex: Female
  Weight: 73 kg

DRUGS (1)
  1. ENHERTU [Suspect]
     Active Substance: FAM-TRASTUZUMAB DERUXTECAN-NXKI
     Indication: Breast cancer
     Dosage: 5.4 UMOL/KG
     Route: 065
     Dates: start: 20230721, end: 20230901

REACTIONS (8)
  - C-reactive protein increased [Fatal]
  - Respiratory failure [Fatal]
  - Pulmonary embolism [Fatal]
  - Dysphagia [Fatal]
  - Lung infiltration [Fatal]
  - Pneumonitis [Fatal]
  - Hypoglossal nerve paralysis [Fatal]
  - Hemiparesis [Fatal]

NARRATIVE: CASE EVENT DATE: 20230916
